FAERS Safety Report 18883930 (Version 1)
Quarter: 2021Q1

REPORT INFORMATION
  Report Type: Not Available
  Country: None (occurrence: None)
  Receive Date: 20210211
  Receipt Date: 20210211
  Transmission Date: 20210420
  Serious: Yes (Death)
  Sender: FDA-Public Use
  Company Number: US-AKORN-160690

PATIENT
  Sex: Female

DRUGS (1)
  1. ZIOPTAN [Suspect]
     Active Substance: TAFLUPROST

REACTIONS (1)
  - Neoplasm malignant [Fatal]

NARRATIVE: CASE EVENT DATE: 20210130
